FAERS Safety Report 22716466 (Version 5)
Quarter: 2024Q1

REPORT INFORMATION
  Report Type: Spontaneous
  Country: US (occurrence: US)
  Receive Date: 20230718
  Receipt Date: 20240219
  Transmission Date: 20240410
  Serious: No
  Sender: FDA-Public Use
  Company Number: US-AGIOS-2307US03416

PATIENT
  Sex: Female

DRUGS (2)
  1. PYRUKYND [Suspect]
     Active Substance: MITAPIVAT
     Indication: Pyruvate kinase deficiency anaemia
     Dosage: 50 MILLIGRAM, QD
     Route: 048
     Dates: start: 20230711
  2. PYRUKYND [Suspect]
     Active Substance: MITAPIVAT
     Dosage: 50 MILLIGRAM, QD
     Route: 048

REACTIONS (3)
  - Insomnia [Unknown]
  - Blood cholesterol increased [Unknown]
  - Sleep disorder [Unknown]
